FAERS Safety Report 6933534-6 (Version None)
Quarter: 2010Q3

REPORT INFORMATION
  Report Type: 
  Country: None (occurrence: None)
  Receive Date: 20100820
  Receipt Date: 20100818
  Transmission Date: 20110219
  Serious: Yes (Life-Threatening)
  Sender: FDA-Public Use
  Company Number: CN-BRISTOL-MYERS SQUIBB COMPANY-15192602

PATIENT
  Age: 72 Year
  Sex: Male
  Weight: 72 kg

DRUGS (10)
  1. CETUXIMAB [Suspect]
     Indication: GASTROOESOPHAGEAL CANCER
     Dosage: CETUXIMAB 5MG/ML. RECENT INF ON 02JUL10
     Route: 042
     Dates: start: 20100430, end: 20100702
  2. CISPLATIN [Suspect]
     Indication: GASTROOESOPHAGEAL CANCER
     Dosage: DAY 1 OF CYCLE. RECENT INF ON 18JUN10
     Route: 042
     Dates: start: 20100430, end: 20100618
  3. CAPECITABINE [Suspect]
     Indication: GASTROOESOPHAGEAL CANCER
     Dosage: DAY 1-15. RECENT INF ON 25JUN10
     Route: 048
     Dates: start: 20100430, end: 20100626
  4. NEUPOGEN [Concomitant]
     Dosage: 15MAY10 TO 24MAY10, 9 DAYS. 05JUL10 /ONG
     Route: 058
     Dates: start: 20100515
  5. EPO [Concomitant]
     Dosage: 1 DF= 10000 AU
     Route: 058
     Dates: start: 20100706
  6. HEMOCOAGULASE [Concomitant]
     Dosage: 1 DF= 1 KU
     Route: 030
     Dates: start: 20100704, end: 20100710
  7. FERRUM [Concomitant]
     Dosage: FERRUM DEXTRAN
     Route: 042
     Dates: start: 20100706
  8. GLYCERIN [Concomitant]
     Route: 054
     Dates: start: 20100503, end: 20100503
  9. NEUMEGA [Concomitant]
     Dosage: 1 DF= 1200 (UNIT NOT SPEC)
     Route: 058
     Dates: start: 20100629, end: 20100708
  10. THROMBOPOIETIN [Concomitant]
     Dosage: 1 DF = 15000 IU
     Route: 058
     Dates: start: 20100704, end: 20100708

REACTIONS (1)
  - ATRIAL FLUTTER [None]
